FAERS Safety Report 12678074 (Version 1)
Quarter: 2016Q3

REPORT INFORMATION
  Report Type: Report from Study
  Country: GB (occurrence: GB)
  Receive Date: 20160823
  Receipt Date: 20160823
  Transmission Date: 20161109
  Serious: Yes (Hospitalization)
  Sender: FDA-Public Use
  Company Number: GB-JNJFOC-20160814603

PATIENT
  Age: 19 Year
  Sex: Female
  Weight: 63.3 kg

DRUGS (1)
  1. STELARA [Suspect]
     Active Substance: USTEKINUMAB
     Indication: PSORIASIS
     Route: 058
     Dates: start: 20160422

REACTIONS (1)
  - Tonsillitis [Recovered/Resolved with Sequelae]

NARRATIVE: CASE EVENT DATE: 20160720
